FAERS Safety Report 9452840 (Version 1)
Quarter: 2013Q3

REPORT INFORMATION
  Report Type: Report from Study
  Country: CA (occurrence: CA)
  Receive Date: 20130812
  Receipt Date: 20130812
  Transmission Date: 20140515
  Serious: Yes (Hospitalization)
  Sender: FDA-Public Use
  Company Number: CA-JNJFOC-20130804489

PATIENT
  Age: 68 Year
  Sex: Female

DRUGS (11)
  1. REMICADE [Suspect]
     Indication: RHEUMATOID ARTHRITIS
     Route: 042
     Dates: start: 20110315
  2. ESTRADIOL [Concomitant]
     Dosage: DAILY
     Route: 065
  3. ALENDRONATE [Concomitant]
     Route: 065
  4. VALSARTAN [Concomitant]
     Dosage: 12.7/160 MG
     Route: 065
  5. ASA [Concomitant]
     Dosage: DAILY
     Route: 065
  6. SYNTHROID [Concomitant]
     Route: 065
  7. WELLBUTRIN  XL [Concomitant]
     Route: 065
  8. NEXIUM [Concomitant]
     Route: 065
  9. COLACE [Concomitant]
     Route: 065
  10. PREDNISONE [Concomitant]
     Route: 065
  11. LYRICA [Concomitant]
     Dosage: DAILY
     Route: 065

REACTIONS (1)
  - Pulmonary embolism [Recovering/Resolving]
